FAERS Safety Report 21302022 (Version 1)
Quarter: 2022Q3

REPORT INFORMATION
  Report Type: Spontaneous
  Country: CN (occurrence: CN)
  Receive Date: 20220907
  Receipt Date: 20220907
  Transmission Date: 20221027
  Serious: Yes (Other)
  Sender: FDA-Public Use
  Company Number: CN-JNJFOC-20220908463

PATIENT
  Age: 9 Day
  Sex: Female

DRUGS (1)
  1. CHILDRENS MOTRIN [Suspect]
     Active Substance: IBUPROFEN
     Indication: Neonatal respiratory distress syndrome
     Route: 048
     Dates: start: 20220607, end: 20220609

REACTIONS (1)
  - Oliguria [Recovered/Resolved]

NARRATIVE: CASE EVENT DATE: 20220607
